FAERS Safety Report 4301498-X (Version None)
Quarter: 2004Q1

REPORT INFORMATION
  Report Type: 
  Country: None (occurrence: None)
  Receive Date: 20040219
  Receipt Date: 20040206
  Transmission Date: 20041129
  Serious: Yes (Hospitalization)
  Sender: FDA-Public Use
  Company Number: 2004007723

PATIENT
  Age: 2 Month
  Sex: Female

DRUGS (1)
  1. BENYLIN PEDIATRIC (DEXTROMETHORPHAN) [Suspect]
     Indication: COUGH
     Dosage: 1/4 TEASPOON ONE TIME, ORAL
     Route: 048
     Dates: start: 20031225, end: 20031225

REACTIONS (2)
  - MEDICATION ERROR [None]
  - PNEUMONIA [None]
